FAERS Safety Report 7804148-0 (Version None)
Quarter: 2011Q4

REPORT INFORMATION
  Report Type: 
  Country: None (occurrence: None)
  Receive Date: 20111010
  Receipt Date: 20111006
  Transmission Date: 20120403
  Serious: Yes (Life-Threatening)
  Sender: FDA-Public Use
  Company Number: FR-JNJFOC-20111002715

PATIENT
  Age: 90 Year
  Sex: Female

DRUGS (3)
  1. RISPERDAL [Suspect]
     Indication: HALLUCINATION
     Route: 048
     Dates: start: 20110101, end: 20110101
  2. AN UNKNOWN MEDICATION [Concomitant]
     Route: 065
  3. RISPERDAL [Suspect]
     Indication: DELIRIUM
     Route: 048
     Dates: start: 20110101, end: 20110101

REACTIONS (1)
  - CARDIAC ARREST [None]
